FAERS Safety Report 18270618 (Version 1)
Quarter: 2020Q3

REPORT INFORMATION
  Report Type: Report from Study
  Country: US (occurrence: US)
  Receive Date: 20200915
  Receipt Date: 20200915
  Transmission Date: 20201103
  Serious: Yes (Hospitalization, Other)
  Sender: FDA-Public Use
  Company Number: US-JNJFOC-A-NJ2019-195966

PATIENT
  Age: 61 Year
  Sex: Female
  Weight: 58.11 kg

DRUGS (5)
  1. REMODULIN [Suspect]
     Active Substance: TREPROSTINIL
     Indication: PRODUCT USED FOR UNKNOWN INDICATION
     Dosage: UNK
     Route: 058
  2. SILDENAFIL CITRATE. [Concomitant]
     Active Substance: SILDENAFIL CITRATE
  3. OPSUMIT [Suspect]
     Active Substance: MACITENTAN
     Indication: PULMONARY HYPERTENSION
     Dosage: 10 MG, QD
     Route: 048
  4. OXYCODONE [Concomitant]
     Active Substance: OXYCODONE
  5. HYDROCODONE [Concomitant]
     Active Substance: HYDROCODONE
     Dosage: 325 MG

REACTIONS (28)
  - Implantable defibrillator insertion [Unknown]
  - Rash [Unknown]
  - Plantar fascial fibromatosis [Unknown]
  - Colonoscopy [Unknown]
  - Infusion site pruritus [Recovering/Resolving]
  - Dizziness [Unknown]
  - Catheter site induration [Unknown]
  - Chills [Unknown]
  - Pyrexia [Unknown]
  - Insomnia [Unknown]
  - Pain [Unknown]
  - Headache [Unknown]
  - Feeling abnormal [Unknown]
  - Limb discomfort [Unknown]
  - Hypotension [Unknown]
  - Catheter site haemorrhage [Recovering/Resolving]
  - Catheter site pain [Unknown]
  - Cardio-respiratory arrest [Unknown]
  - Catheter site swelling [Unknown]
  - Cardiac ablation [Unknown]
  - Arrhythmia [Unknown]
  - Chest pain [Unknown]
  - Catheter placement [Unknown]
  - Fatigue [Unknown]
  - Hospitalisation [Unknown]
  - Dyspepsia [Unknown]
  - Somnolence [Unknown]
  - Catheter site erythema [Unknown]

NARRATIVE: CASE EVENT DATE: 20200221
